FAERS Safety Report 5066517-4 (Version None)
Quarter: 2006Q3

REPORT INFORMATION
  Report Type: 
  Country: None (occurrence: None)
  Receive Date: 20060717
  Receipt Date: 20050208
  Transmission Date: 20061208
  Serious: Yes (Other)
  Sender: FDA-Public Use
  Company Number: 2005-02-1520

PATIENT
  Age: 79 Year
  Sex: Male
  Weight: 89 kg

DRUGS (16)
  1. INTEGRILIN [Suspect]
     Dosage: SEE IMAGE
     Route: 042
  2. HEPARIN [Suspect]
     Dosage: 4000 U INTRAVENOUS
     Route: 042
  3. CLOPIDOGREL [Suspect]
     Dosage: 75 MG QD
  4. ASPIRIN [Suspect]
     Dosage: 325 MG QD
  5. PROPAFENONE HCL [Concomitant]
  6. RAMIPRIL [Concomitant]
  7. DILTIAZEM HCL [Concomitant]
  8. TERAZOSIN HCL [Concomitant]
  9. DOCUSATE SODIUM [Concomitant]
  10. NITRGLYCERIN TRANSDERMAL SYSTEM [Concomitant]
  11. FERROUS GLUCONATE [Concomitant]
  12. SALMETEROL [Concomitant]
  13. FLUTICASONE PROPIONATE [Concomitant]
  14. SIMVASTATIN [Concomitant]
  15. ACETYLCYSTEINE [Concomitant]
  16. PLACEBO [Concomitant]

REACTIONS (1)
  - THROMBOCYTOPENIA [None]
